FAERS Safety Report 24621179 (Version 1)
Quarter: 2024Q4

REPORT INFORMATION
  Report Type: Spontaneous
  Country: US (occurrence: None)
  Receive Date: 20241114
  Receipt Date: 20241114
  Transmission Date: 20250114
  Serious: Yes (Other)
  Sender: Public
  Company Number: None

PATIENT
  Age: 71 Year
  Sex: Female
  Weight: 83.42 kg

DRUGS (10)
  1. ZEPBOUND [Suspect]
     Active Substance: TIRZEPATIDE
  2. AMLODIPINE [Concomitant]
  3. LEVOTHYROXINE [Concomitant]
  4. PROVENTIL HFA [Concomitant]
  5. STIOLTO RESPIMAT [Concomitant]
  6. VITAMIN B [Concomitant]
  7. ALPRAZOLAN [Concomitant]
  8. ONDANTRION [Concomitant]
  9. SUCRALFATE [Concomitant]
     Active Substance: SUCRALFATE
  10. NEXIUM [Concomitant]
     Active Substance: ESOMEPRAZOLE MAGNESIUM

REACTIONS (11)
  - Abdominal distension [None]
  - Abdominal pain [None]
  - Bowel movement irregularity [None]
  - Fatigue [None]
  - Nausea [None]
  - Diarrhoea [None]
  - Paraesthesia [None]
  - Gastrooesophageal reflux disease [None]
  - Vomiting projectile [None]
  - Abdominal pain upper [None]
  - Throat irritation [None]

NARRATIVE: CASE EVENT DATE: 20240924
